FAERS Safety Report 7634011-X (Version None)
Quarter: 2011Q3

REPORT INFORMATION
  Report Type: 
  Country: None (occurrence: None)
  Receive Date: 20110725
  Receipt Date: 20110715
  Transmission Date: 20111222
  Serious: Yes (Death)
  Sender: FDA-Public Use
  Company Number: US-GENZYME-CLOF-1001699

PATIENT
  Age: 61 Year
  Sex: Female

DRUGS (13)
  1. MELPHALAN HYDROCHLORIDE [Suspect]
     Indication: ACUTE MYELOID LEUKAEMIA
  2. TACROLIMUS [Suspect]
     Indication: BONE MARROW CONDITIONING REGIMEN
     Dosage: UNK STARTED ON DAY -2
     Route: 042
  3. BLOOD AND RELATED PRODUCTS [Concomitant]
     Indication: ANAEMIA PROPHYLAXIS
  4. TRIMETHOPRIM + SULFAMETHOXAZOLE [Concomitant]
     Indication: INFECTION PROPHYLAXIS
     Dosage: GIVEN FROM ENGRAFTMENT UNTIL 1 YEAR AFTER TRANSPLANT
  5. MELPHALAN HYDROCHLORIDE [Suspect]
     Indication: BONE MARROW CONDITIONING REGIMEN
     Dosage: 140 MG/M2, QD ON DAY -2
     Route: 042
  6. FILGRASTIM [Concomitant]
     Indication: SUPPORTIVE CARE
     Dosage: 5 MCG/KG, QD STARTED ON DAY 1
     Route: 058
  7. CAMPATH [Suspect]
     Indication: ACUTE MYELOID LEUKAEMIA
  8. TACROLIMUS [Suspect]
     Indication: ACUTE MYELOID LEUKAEMIA
  9. CLOLAR [Suspect]
     Indication: BONE MARROW CONDITIONING REGIMEN
     Dosage: UNK ON DAYS -7 TO -3
     Route: 042
  10. CLOLAR [Suspect]
     Indication: ACUTE MYELOID LEUKAEMIA
  11. CAMPATH [Suspect]
     Indication: BONE MARROW CONDITIONING REGIMEN
     Dosage: 20 MG QDX5 ON DAYS -7 TO -3
     Route: 042
  12. TACROLIMUS [Suspect]
     Indication: PROPHYLAXIS AGAINST GRAFT VERSUS HOST DISEASE
     Dosage: UNK
     Route: 048
  13. ACYCLOVIR [Concomitant]
     Indication: INFECTION PROPHYLAXIS

REACTIONS (1)
  - CIRCULATORY COLLAPSE [None]
